FAERS Safety Report 14698961 (Version 2)
Quarter: 2018Q2

REPORT INFORMATION
  Report Type: Spontaneous
  Country: CZ (occurrence: CZ)
  Receive Date: 20180330
  Receipt Date: 20180405
  Transmission Date: 20180711
  Serious: Yes (Death, Life-Threatening, Hospitalization, Disabling, Other)
  Sender: FDA-Public Use
  Company Number: CZ-CONCORDIA PHARMACEUTICALS INC.-E2B_00010767

PATIENT
  Age: 88 Year
  Sex: Female
  Weight: 50 kg

DRUGS (12)
  1. DIGOXIN. [Suspect]
     Active Substance: DIGOXIN
     Dosage: IN THE MORNING ON AN EMPTY STOMACH 2X250 MG
     Route: 048
     Dates: start: 201711, end: 20180118
  2. HELICID 20 MG [Concomitant]
  3. WARFARIN 5 MG [Concomitant]
     Active Substance: WARFARIN
     Dosage: 0-1-0 THREE TIMES A WEEK
  4. ACTRAPID [Concomitant]
     Active Substance: INSULIN HUMAN
     Dosage: 0-12-10-6 UNITS
  5. PRESID 5MG [Concomitant]
  6. TULIP 20 MG [Concomitant]
  7. BETALOC ZOK 200 MG [Concomitant]
  8. FURORESE 40 MG [Concomitant]
  9. ANOPYRIN 100MG [Concomitant]
  10. WARFARIN 5 MG [Concomitant]
     Active Substance: WARFARIN
     Dosage: FOUR TIMES A WEEK
  11. LANTUS [Concomitant]
     Active Substance: INSULIN GLARGINE
     Dosage: 10-0-0-0 UNITS
  12. VEROSPIRON 25MG [Concomitant]

REACTIONS (5)
  - Decreased appetite [Fatal]
  - Vomiting [Fatal]
  - Nausea [Fatal]
  - Confusional state [Fatal]
  - Diarrhoea [Fatal]

NARRATIVE: CASE EVENT DATE: 20171213
